FAERS Safety Report 5847151-2 (Version None)
Quarter: 2008Q3

REPORT INFORMATION
  Report Type: 
  Country: None (occurrence: None)
  Receive Date: 20080815
  Receipt Date: 20080808
  Transmission Date: 20090109
  Serious: Yes (Disabling, Other)
  Sender: FDA-Public Use
  Company Number: PHEH2008US05886

PATIENT
  Sex: Female

DRUGS (1)
  1. RECLAST [Suspect]
     Dosage: UNK
     Dates: start: 20080123

REACTIONS (16)
  - ABDOMINAL PAIN [None]
  - BONE PAIN [None]
  - CONSTIPATION [None]
  - DEPRESSION [None]
  - DYSPNOEA [None]
  - FLATULENCE [None]
  - GAIT DISTURBANCE [None]
  - INFLUENZA LIKE ILLNESS [None]
  - MEDIAL TIBIAL STRESS SYNDROME [None]
  - MOBILITY DECREASED [None]
  - MYALGIA [None]
  - NODULE [None]
  - OEDEMA PERIPHERAL [None]
  - RASH PRURITIC [None]
  - SKIN BURNING SENSATION [None]
  - URTICARIA [None]
